FAERS Safety Report 24995902 (Version 1)
Quarter: 2025Q1

REPORT INFORMATION
  Report Type: Spontaneous
  Country: US (occurrence: None)
  Receive Date: 20250221
  Receipt Date: 20250221
  Transmission Date: 20250408
  Serious: No
  Sender: INCYTE
  Company Number: US-INCYTE CORPORATION-2025IN001542

PATIENT
  Age: 55 Year

DRUGS (1)
  1. JAKAFI [Suspect]
     Active Substance: RUXOLITINIB
     Indication: Polycythaemia vera
     Dosage: 15 MILLIGRAM, BID

REACTIONS (5)
  - Depressed mood [Unknown]
  - Emotional disorder [Unknown]
  - General physical health deterioration [Unknown]
  - Asthenia [Unknown]
  - Blood cholesterol increased [Unknown]
